FAERS Safety Report 6895460-0 (Version None)
Quarter: 2010Q3

REPORT INFORMATION
  Report Type: 
  Country: None (occurrence: None)
  Receive Date: 20100802
  Receipt Date: 20100728
  Transmission Date: 20110219
  Serious: Yes (Life-Threatening, Hospitalization, Other)
  Sender: FDA-Public Use
  Company Number: PL-ROXANE LABORATORIES, INC.-2010-RO-00938RO

PATIENT
  Age: 4 Year
  Sex: Female

DRUGS (13)
  1. PREDNISONE [Suspect]
     Indication: ACUTE LYMPHOCYTIC LEUKAEMIA
  2. METHOTREXATE [Suspect]
     Indication: ACUTE LYMPHOCYTIC LEUKAEMIA
     Dosage: 12 MG
     Route: 037
  3. DIAZEPAM [Suspect]
     Indication: CONVULSION
     Route: 042
  4. AMLODIPINE [Suspect]
     Indication: HYPERTENSION
  5. PROPRANOLOL [Suspect]
     Indication: HYPERTENSION
  6. SODIUM CHLORIDE [Suspect]
     Indication: PROPHYLAXIS
     Route: 042
  7. DEXTROSE [Suspect]
     Indication: PROPHYLAXIS
     Route: 042
  8. SODIUM BICARBONATE [Suspect]
     Indication: PROPHYLAXIS
     Route: 042
  9. ALLOPURINOL [Suspect]
     Indication: PROPHYLAXIS
  10. CLONAZEPAM [Suspect]
     Indication: CONVULSION
  11. URAPIDIL [Suspect]
     Indication: HYPERTENSION
  12. MANNITOL [Suspect]
     Indication: OPTIC DISC DISORDER
  13. VALPROIC ACID [Suspect]
     Indication: REVERSIBLE POSTERIOR LEUKOENCEPHALOPATHY SYNDROME

REACTIONS (6)
  - HYPERTENSION [None]
  - KIDNEY ENLARGEMENT [None]
  - OPTIC DISC DISORDER [None]
  - RENAL IMPAIRMENT [None]
  - RESPIRATORY FAILURE [None]
  - REVERSIBLE POSTERIOR LEUKOENCEPHALOPATHY SYNDROME [None]
